FAERS Safety Report 19987275 (Version 5)
Quarter: 2024Q1

REPORT INFORMATION
  Report Type: Spontaneous
  Country: US (occurrence: US)
  Receive Date: 20211022
  Receipt Date: 20240104
  Transmission Date: 20240410
  Serious: Yes (Other)
  Sender: FDA-Public Use
  Company Number: US-PFIZER INC-202101407929

PATIENT
  Age: 66 Year
  Sex: Female
  Weight: 117.91 kg

DRUGS (3)
  1. XELJANZ XR [Suspect]
     Active Substance: TOFACITINIB CITRATE
     Indication: Rheumatoid arthritis
     Dosage: 11 MG
  2. XELJANZ XR [Suspect]
     Active Substance: TOFACITINIB CITRATE
     Dosage: 11 MG, 1X/DAY
     Dates: start: 2015
  3. TRULICITY [Concomitant]
     Active Substance: DULAGLUTIDE
     Indication: Diabetes mellitus
     Dosage: 3.0, WEEKLY
     Dates: start: 2010

REACTIONS (5)
  - Macular degeneration [Unknown]
  - Blindness [Unknown]
  - Glaucoma [Unknown]
  - Visual impairment [Unknown]
  - Body height decreased [Unknown]
